FAERS Safety Report 14480072 (Version 1)
Quarter: 2018Q1

REPORT INFORMATION
  Report Type: Spontaneous
  Country: IE (occurrence: IE)
  Receive Date: 20180202
  Receipt Date: 20180202
  Transmission Date: 20180509
  Serious: Yes (Life-Threatening)
  Sender: FDA-Public Use
  Company Number: IE-BAYER-2018-020149

PATIENT
  Age: 77 Year
  Sex: Female

DRUGS (1)
  1. PRIMOVIST [Suspect]
     Active Substance: GADOXETATE DISODIUM
     Indication: NUCLEAR MAGNETIC RESONANCE IMAGING
     Dosage: 181.43 MG, UNK
     Route: 042

REACTIONS (6)
  - Respiration abnormal [Recovered/Resolved]
  - Unresponsive to stimuli [Recovered/Resolved]
  - Foaming at mouth [Recovered/Resolved]
  - Seizure [Recovered/Resolved]
  - Cyanosis [Recovered/Resolved]
  - Binocular eye movement disorder [Recovered/Resolved]

NARRATIVE: CASE EVENT DATE: 20171205
